FAERS Safety Report 16445943 (Version 1)
Quarter: 2019Q2

REPORT INFORMATION
  Report Type: Other
  Country: CA (occurrence: CA)
  Receive Date: 20190618
  Receipt Date: 20190618
  Transmission Date: 20190711
  Serious: Yes (Life-Threatening, Hospitalization)
  Sender: FDA-Public Use
  Company Number: CA-PFIZER INC-2019257222

PATIENT
  Age: 13 Year
  Sex: Female

DRUGS (5)
  1. FENTANYL. [Concomitant]
     Active Substance: FENTANYL
     Dosage: UNK
  2. NITROGLYCERIN. [Suspect]
     Active Substance: NITROGLYCERIN
     Dosage: UNK
     Route: 062
  3. NITROGLYCERIN. [Suspect]
     Active Substance: NITROGLYCERIN
     Dosage: 2 UG, UNK [1 EVERY 1 MINUTE(S)]
     Route: 042
  4. PROPOFOL. [Concomitant]
     Active Substance: PROPOFOL
     Dosage: UNK
  5. EPINEPHRINE. [Suspect]
     Active Substance: EPINEPHRINE
     Dosage: 10 ML, UNK
     Route: 058

REACTIONS (11)
  - Ejection fraction decreased [Unknown]
  - Accidental overdose [Unknown]
  - Acute pulmonary oedema [Unknown]
  - Tachyarrhythmia [Unknown]
  - Cardiac failure [Unknown]
  - Hypotension [Unknown]
  - Troponin I increased [Unknown]
  - Wrong product administered [Unknown]
  - Ventricular hypokinesia [Unknown]
  - Hypertension [Unknown]
  - Supraventricular tachycardia [Unknown]
